FAERS Safety Report 4426537-7 (Version None)
Quarter: 2004Q3

REPORT INFORMATION
  Report Type: 
  Country: None (occurrence: None)
  Receive Date: 20040816
  Receipt Date: 20020208
  Transmission Date: 20050211
  Serious: Yes (Hospitalization, Other)
  Sender: FDA-Public Use
  Company Number: PHEH2002US01559

PATIENT
  Age: 56 Year
  Sex: Male
  Weight: 102 kg

DRUGS (22)
  1. TEGASEROD VS PLACEBO [Suspect]
     Indication: CONSTIPATION
     Dosage: 6 MG, BID
     Route: 048
     Dates: start: 20011105, end: 20020131
  2. NITROSTAT [Concomitant]
     Indication: ANGINA PECTORIS
  3. FLUOXETINE [Concomitant]
     Indication: DEPRESSION
  4. CLARITIN [Concomitant]
     Indication: SEASONAL ALLERGY
  5. PHENTERMINE [Concomitant]
  6. WELLBUTRIN [Concomitant]
     Indication: SMOKING CESSATION THERAPY
  7. LORAZEPAM [Concomitant]
  8. NEXIUM [Concomitant]
  9. LIPITOR [Concomitant]
     Indication: HYPERCHOLESTEROLAEMIA
  10. TOPROL-XL [Concomitant]
     Indication: ANGINA PECTORIS
  11. ZESTRIL [Concomitant]
  12. ASPIRIN [Concomitant]
  13. MULTI-VITAMINS [Concomitant]
  14. SINGULAIR [Concomitant]
  15. COUMADIN [Concomitant]
  16. FLONASE [Concomitant]
     Indication: SEASONAL ALLERGY
  17. COMBIVENT [Concomitant]
  18. FLOVENT [Concomitant]
  19. ADVIL [Concomitant]
  20. METAMUCIL-2 [Concomitant]
     Indication: CONSTIPATION
  21. IBUPROFEN [Concomitant]
     Indication: ARTHRALGIA
  22. PERCOCET [Concomitant]

REACTIONS (2)
  - ANAL FISSURE [None]
  - RECTAL HAEMORRHAGE [None]
